FAERS Safety Report 23299955 (Version 1)
Quarter: 2023Q4

REPORT INFORMATION
  Report Type: Spontaneous
  Country: PK (occurrence: None)
  Receive Date: 20231215
  Receipt Date: 20231215
  Transmission Date: 20240110
  Serious: Yes (Hospitalization)
  Sender: FDA-Public Use
  Company Number: PK-MDD US Operations-ADM202312-004861

PATIENT
  Age: 67 Year
  Sex: Male

DRUGS (8)
  1. AMANTADINE HYDROCHLORIDE [Suspect]
     Active Substance: AMANTADINE HYDROCHLORIDE
     Indication: Parkinson^s disease
     Dosage: NOT PROVIDED
  2. PROCYCLIDINE [Suspect]
     Active Substance: PROCYCLIDINE
     Indication: Parkinson^s disease
     Dosage: NOT PROVIDED
  3. GABAPENTIN [Concomitant]
     Active Substance: GABAPENTIN
     Dosage: NOT PROVIDED
  4. QUETIAPINE [Concomitant]
     Active Substance: QUETIAPINE
     Dosage: NOT PROVIDED
  5. ROPINIROLE [Concomitant]
     Active Substance: ROPINIROLE
     Dosage: NOT PROVIDED
  6. AMLODIPINE [Concomitant]
     Active Substance: AMLODIPINE BESYLATE
     Dosage: NOT PROVIDED
  7. SERTRALINE [Concomitant]
     Active Substance: SERTRALINE HYDROCHLORIDE
     Dosage: NOT PROVIDED
  8. CARBIDOPA\LEVODOPA [Concomitant]
     Active Substance: CARBIDOPA\LEVODOPA
     Dosage: NOT PROVIDED

REACTIONS (1)
  - Intestinal pseudo-obstruction [Recovered/Resolved]
